FAERS Safety Report 18080629 (Version 1)
Quarter: 2020Q3

REPORT INFORMATION
  Report Type: Spontaneous
  Country: FR (occurrence: FR)
  Receive Date: 20200728
  Receipt Date: 20200728
  Transmission Date: 20201103
  Serious: Yes (Hospitalization)
  Sender: FDA-Public Use
  Company Number: FR-PFIZER INC-2020282945

PATIENT
  Age: 80 Year
  Sex: Female
  Weight: 50 kg

DRUGS (2)
  1. DUROGESIC [Suspect]
     Active Substance: FENTANYL
     Indication: URINARY TRACT PAIN
     Dosage: 75 UG, 1X/DAY
     Route: 062
     Dates: start: 20200616
  2. GABAPENTIN. [Suspect]
     Active Substance: GABAPENTIN
     Indication: URINARY TRACT PAIN
     Dosage: 1200 MG, 1X/DAY
     Route: 048
     Dates: start: 20200620

REACTIONS (5)
  - Vertigo [Recovered/Resolved]
  - Vomiting [Recovered/Resolved]
  - Fall [Recovered/Resolved]
  - Off label use [Unknown]
  - Product use in unapproved indication [Unknown]

NARRATIVE: CASE EVENT DATE: 20200620
